FAERS Safety Report 16107802 (Version 1)
Quarter: 2019Q1

REPORT INFORMATION
  Report Type: Spontaneous
  Country: US (occurrence: US)
  Receive Date: 20190322
  Receipt Date: 20190322
  Transmission Date: 20190418
  Serious: No
  Sender: FDA-Public Use
  Company Number: US-ASTRAZENECA-2019SE32910

PATIENT
  Sex: Female

DRUGS (2)
  1. SYMPROIC [Concomitant]
     Active Substance: NALDEMEDINE
  2. CRESTOR [Suspect]
     Active Substance: ROSUVASTATIN CALCIUM
     Route: 048

REACTIONS (3)
  - Muscle spasms [Unknown]
  - Adverse drug reaction [Unknown]
  - Drug intolerance [Unknown]
